FAERS Safety Report 7219432-1 (Version None)
Quarter: 2011Q1

REPORT INFORMATION
  Report Type: 
  Country: None (occurrence: None)
  Receive Date: 20110103
  Receipt Date: 20101221
  Transmission Date: 20110831
  Serious: Yes (Other)
  Sender: FDA-Public Use
  Company Number: 1000016277

PATIENT
  Age: 46 Year
  Sex: Female
  Weight: 115.6 kg

DRUGS (19)
  1. THEOPHYLLINE [Suspect]
     Indication: ASTHMA
     Dosage: 200 MG (200 MG,QAM),ORAL
     Route: 048
  2. XYZAL [Concomitant]
  3. CALCIUM/VITAMIN D [Concomitant]
  4. PULMICORT FLEXHALER [Suspect]
     Indication: ASTHMA
     Dosage: 360 MCG (180 MCG,2 IN 1 D)
     Route: 055
  5. MULTI-VITAMINS [Concomitant]
  6. RELPAX [Concomitant]
  7. NEXIUM [Concomitant]
  8. ZYFLO CR [Suspect]
     Indication: ASTHMA
     Dosage: 2400 MG (1200 MG,2 IN 1 D), ORAL
     Route: 048
  9. SAVELLA [Suspect]
     Indication: FIBROMYALGIA
     Dosage: SEE IMAGE
     Route: 048
     Dates: start: 20100601, end: 20100601
  10. SAVELLA [Suspect]
     Indication: FIBROMYALGIA
     Dosage: SEE IMAGE
     Route: 048
     Dates: start: 20100701, end: 20100801
  11. SAVELLA [Suspect]
     Indication: FIBROMYALGIA
     Dosage: SEE IMAGE
     Route: 048
     Dates: start: 20100601, end: 20100701
  12. SAVELLA [Suspect]
     Indication: FIBROMYALGIA
     Dosage: SEE IMAGE
     Route: 048
     Dates: start: 20100601, end: 20100601
  13. MAXAIR [Suspect]
     Indication: ASTHMA
     Dosage: (2 IN 1 D)
     Route: 055
  14. CYANOCOBALAMIN [Concomitant]
  15. SAVELLA [Suspect]
     Indication: FIBROMYALGIA
     Dosage: 400 MG (200 MG, 2 IN 1 D), ORAL
     Route: 048
     Dates: start: 20100801, end: 20100914
  16. ADVAIR HFA [Suspect]
     Indication: ASTHMA
     Dosage: 2 PUFFS BID (2 IN 1 D)
     Route: 055
  17. RHINOCORT [Concomitant]
  18. TOPAMAX [Concomitant]
  19. PERCOCET [Concomitant]

REACTIONS (5)
  - CONDITION AGGRAVATED [None]
  - BLOOD PRESSURE INCREASED [None]
  - CATARACT [None]
  - SINUSITIS [None]
  - OVERDOSE [None]
